FAERS Safety Report 11844791 (Version 2)
Quarter: 2015Q4

REPORT INFORMATION
  Report Type: Report from Study
  Country: ID (occurrence: ID)
  Receive Date: 20151217
  Receipt Date: 20151218
  Transmission Date: 20160305
  Serious: Yes (Death, Other)
  Sender: FDA-Public Use
  Company Number: ID-ASTELLAS-2015US043515

PATIENT
  Age: 65 Year
  Sex: Male

DRUGS (1)
  1. ERLOTINIB [Suspect]
     Active Substance: ERLOTINIB
     Indication: LUNG NEOPLASM MALIGNANT
     Route: 065
     Dates: start: 201510

REACTIONS (7)
  - Rash [Recovered/Resolved]
  - Diarrhoea [Recovered/Resolved]
  - Insomnia [Recovered/Resolved]
  - Asthenia [Not Recovered/Not Resolved]
  - Dry skin [Not Recovered/Not Resolved]
  - Cerebrovascular accident [Fatal]
  - Renal failure [Fatal]

NARRATIVE: CASE EVENT DATE: 201511
